FAERS Safety Report 5415364-X (Version None)
Quarter: 2007Q3

REPORT INFORMATION
  Report Type: 
  Country: None (occurrence: None)
  Receive Date: 20070713
  Receipt Date: 20070410
  Transmission Date: 20080115
  Serious: Yes (Hospitalization)
  Sender: FDA-Public Use
  Company Number: US-JNJFOC-20060902703

PATIENT
  Age: 34 Year
  Sex: Female
  Weight: 110.2241 kg

DRUGS (5)
  1. ORTHO EVRA [Suspect]
     Indication: CONTRACEPTION
     Dosage: TRANSDERMAL
     Route: 062
     Dates: start: 20030201, end: 20050801
  2. ORTHO EVRA [Suspect]
     Indication: MENORRHAGIA
     Dosage: TRANSDERMAL
     Route: 062
     Dates: start: 20030201, end: 20050801
  3. VICODIN [Concomitant]
  4. IBUPROFEN [Concomitant]
  5. FLEXERIL [Concomitant]

REACTIONS (2)
  - DEEP VEIN THROMBOSIS [None]
  - PULMONARY EMBOLISM [None]
